FAERS Safety Report 4269478-0 (Version None)
Quarter: 2004Q1

REPORT INFORMATION
  Report Type: 
  Country: None (occurrence: None)
  Receive Date: 20040113
  Receipt Date: 20031113
  Transmission Date: 20041129
  Serious: Yes (Hospitalization)
  Sender: FDA-Public Use
  Company Number: KR-ROCHE-351583

PATIENT
  Age: 26 Year
  Sex: Male
  Weight: 64.3 kg

DRUGS (2)
  1. PEG-INTERFERON ALFA 2A (RO 25-8310) [Suspect]
     Route: 058
     Dates: start: 20020718, end: 20030612
  2. BLINDED LAMIVUDINE [Suspect]
     Route: 048
     Dates: start: 20020718, end: 20030618

REACTIONS (1)
  - DIABETIC KETOACIDOSIS [None]
